FAERS Safety Report 8926717 (Version 2)
Quarter: 2014Q2

REPORT INFORMATION
  Report Type: Spontaneous
  Country: US (occurrence: US)
  Receive Date: 20121127
  Receipt Date: 20131024
  Transmission Date: 20141212
  Serious: No
  Sender: FDA-Public Use
  Company Number: US-PFIZER INC-2012292949

PATIENT
  Age: 51 Year
  Sex: Female
  Weight: 65.8 kg

DRUGS (1)
  1. PREMPRO [Suspect]
     Indication: MENOPAUSE
     Dosage: 0.45/1.5 MG, 1X/DAY
     Route: 048
     Dates: start: 2011, end: 20121120

REACTIONS (3)
  - Drug ineffective [Unknown]
  - Emotional disorder [Unknown]
  - Amnesia [Unknown]
